FAERS Safety Report 8190813-5 (Version None)
Quarter: 2012Q1

REPORT INFORMATION
  Report Type: 
  Country: None (occurrence: None)
  Receive Date: 20120307
  Receipt Date: 20120224
  Transmission Date: 20120608
  Serious: Yes (Hospitalization, Congenital Anomaly, Other)
  Sender: FDA-Public Use
  Company Number: DE-FRI-1000028438

PATIENT
  Sex: Male
  Weight: 3.1 kg

DRUGS (2)
  1. ESCITALOPRAM [Suspect]
     Dosage: 40 MG
     Route: 064
     Dates: end: 20110810
  2. ESCITALOPRAM [Suspect]
     Route: 063
     Dates: start: 20110810

REACTIONS (9)
  - PATENT DUCTUS ARTERIOSUS [None]
  - FOETAL EXPOSURE DURING PREGNANCY [None]
  - NEONATAL RESPIRATORY DISTRESS SYNDROME [None]
  - INFANTILE APNOEIC ATTACK [None]
  - AGITATION NEONATAL [None]
  - OVERDOSE [None]
  - ATRIAL SEPTAL DEFECT [None]
  - EXPOSURE DURING BREAST FEEDING [None]
  - PYELOCALIECTASIS [None]
